FAERS Safety Report 10930365 (Version 1)
Quarter: 2015Q1

REPORT INFORMATION
  Report Type: Spontaneous
  Country: US (occurrence: None)
  Receive Date: 20150318
  Receipt Date: 20150318
  Transmission Date: 20150721
  Serious: Yes (Hospitalization)
  Sender: FDA-Public Use
  Company Number: None

PATIENT
  Sex: Male
  Weight: 66.8 kg

DRUGS (20)
  1. SOFOSBUVIR [Suspect]
     Active Substance: SOFOSBUVIR
     Indication: HEPATITIS C
     Route: 048
     Dates: end: 20150228
  2. FOLIC ACID. [Concomitant]
     Active Substance: FOLIC ACID
  3. MATHOCARBAMOL [Concomitant]
  4. BACTRIM [Concomitant]
     Active Substance: SULFAMETHOXAZOLE\TRIMETHOPRIM
  5. ALDAOTONE [Concomitant]
  6. ASPIRIN. [Concomitant]
     Active Substance: ASPIRIN
  7. COUMADIN [Concomitant]
     Active Substance: WARFARIN SODIUM
  8. SOTALOL. [Concomitant]
     Active Substance: SOTALOL
  9. BUMETANIDE. [Concomitant]
     Active Substance: BUMETANIDE
  10. LACTULOSE. [Concomitant]
     Active Substance: LACTULOSE
  11. WARFARIN [Concomitant]
     Active Substance: WARFARIN
  12. FUROSEMIDE. [Concomitant]
     Active Substance: FUROSEMIDE
  13. LISINOPRIL. [Concomitant]
     Active Substance: LISINOPRIL
  14. SIMEPREVIR [Suspect]
     Active Substance: SIMEPREVIR
     Indication: HEPATITIS C
     Route: 048
     Dates: end: 20150228
  15. FERROUS SULFATE [Concomitant]
     Active Substance: FERROUS SULFATE\FERROUS SULFATE, DRIED
  16. BENONATATE [Concomitant]
  17. FOLIC ACID. [Concomitant]
     Active Substance: FOLIC ACID
  18. FERROUS SULFATE [Concomitant]
     Active Substance: FERROUS SULFATE\FERROUS SULFATE, DRIED
  19. GABAPENTIN. [Concomitant]
     Active Substance: GABAPENTIN
  20. POTASSIUM [Concomitant]
     Active Substance: POTASSIUM

REACTIONS (1)
  - Anaemia [None]

NARRATIVE: CASE EVENT DATE: 20141125
